FAERS Safety Report 5856898-3 (Version None)
Quarter: 2008Q3

REPORT INFORMATION
  Report Type: 
  Country: None (occurrence: None)
  Receive Date: 20080822
  Receipt Date: 20080822
  Transmission Date: 20090109
  Serious: Yes (Other)
  Sender: FDA-Public Use
  Company Number: None

PATIENT
  Age: 36 Year
  Sex: Female
  Weight: 49.8957 kg

DRUGS (1)
  1. MULTI-VITAMIN [Suspect]
     Indication: MEDICAL DIET
     Dosage: 1 PILL DAILY
     Dates: start: 20080729, end: 20080810

REACTIONS (4)
  - DEPRESSION [None]
  - NAUSEA [None]
  - PARANOIA [None]
  - VOMITING [None]
